FAERS Safety Report 14502970 (Version 1)
Quarter: 2018Q1

REPORT INFORMATION
  Report Type: Spontaneous
  Country: US (occurrence: US)
  Receive Date: 20180208
  Receipt Date: 20180208
  Transmission Date: 20180509
  Serious: Yes (Hospitalization)
  Sender: FDA-Public Use
  Company Number: US-WEST-WARD PHARMACEUTICALS CORP.-US-H14001-18-00776

PATIENT
  Age: 30 Year
  Sex: Female
  Weight: 56 kg

DRUGS (8)
  1. KETAMINE [Suspect]
     Active Substance: KETAMINE
     Indication: COMPLEX REGIONAL PAIN SYNDROME
     Dosage: 10 MG/H
     Route: 065
  2. DULOXETINE. [Concomitant]
     Active Substance: DULOXETINE
     Route: 065
  3. KETAMINE [Suspect]
     Active Substance: KETAMINE
     Dosage: 15 MG/H
     Route: 065
  4. KETAMINE [Suspect]
     Active Substance: KETAMINE
     Dosage: 20 MG/H
     Route: 065
  5. DULOXETINE. [Concomitant]
     Active Substance: DULOXETINE
     Indication: PRODUCT USED FOR UNKNOWN INDICATION
     Route: 065
  6. KETAMINE [Suspect]
     Active Substance: KETAMINE
     Dosage: 25 MG/H
     Route: 065
  7. HYDROXYZINE [Concomitant]
     Active Substance: HYDROXYZINE HYDROCHLORIDE
     Indication: ANXIETY
     Route: 065
  8. MEMANTINE. [Concomitant]
     Active Substance: MEMANTINE
     Indication: COMPLEX REGIONAL PAIN SYNDROME
     Route: 065

REACTIONS (1)
  - Mania [Recovered/Resolved]
